FAERS Safety Report 11519786 (Version 1)
Quarter: 2015Q3

REPORT INFORMATION
  Report Type: Spontaneous
  Country: US (occurrence: None)
  Receive Date: 20150916
  Receipt Date: 20150916
  Transmission Date: 20151125
  Serious: Yes (Hospitalization)
  Sender: FDA-Public Use
  Company Number: None

PATIENT
  Age: 42 Year
  Sex: Female
  Weight: 150 kg

DRUGS (15)
  1. LEVEMIR [Concomitant]
     Active Substance: INSULIN DETEMIR
  2. LISINOPRIL. [Concomitant]
     Active Substance: LISINOPRIL
  3. OXYCODONE [Concomitant]
     Active Substance: OXYCODONE
  4. CUBICIN [Suspect]
     Active Substance: DAPTOMYCIN
     Indication: RHABDOMYOLYSIS
     Route: 042
     Dates: start: 20150904, end: 20150913
  5. NOVOLOG [Concomitant]
     Active Substance: INSULIN ASPART
  6. ONDANSETRON [Concomitant]
     Active Substance: ONDANSETRON
  7. HYDRALAZINE [Concomitant]
     Active Substance: HYDRALAZINE HYDROCHLORIDE
  8. TRAZADOINE [Concomitant]
  9. LOVENOX [Concomitant]
     Active Substance: ENOXAPARIN SODIUM
  10. POLYETHYLENE GLYCOL [Concomitant]
     Active Substance: POLYETHYLENE GLYCOLS
  11. AMPLODIPINE [Concomitant]
  12. FLUTICASIONE [Concomitant]
  13. NEOMYCIN-POLYMYXIN-DEXAMETHASONE [Concomitant]
  14. ACETAMINOPHEN. [Concomitant]
     Active Substance: ACETAMINOPHEN
  15. ROZEREM [Concomitant]
     Active Substance: RAMELTEON

REACTIONS (2)
  - Rhabdomyolysis [None]
  - Pain in extremity [None]

NARRATIVE: CASE EVENT DATE: 20150913
